FAERS Safety Report 14089675 (Version 2)
Quarter: 2021Q3

REPORT INFORMATION
  Report Type: Spontaneous
  Country: US (occurrence: US)
  Receive Date: 20171014
  Receipt Date: 20210826
  Transmission Date: 20211014
  Serious: Yes (Other)
  Sender: FDA-Public Use
  Company Number: US-SA-2017SA167048

PATIENT
  Age: 46 Year
  Sex: Female

DRUGS (2)
  1. AUBAGIO [Suspect]
     Active Substance: TERIFLUNOMIDE
     Indication: MULTIPLE SCLEROSIS
     Dosage: 14 MG,QD
     Route: 048
     Dates: start: 20140829
  2. AUBAGIO [Suspect]
     Active Substance: TERIFLUNOMIDE
     Dosage: 14 MG, QD
     Route: 048
     Dates: start: 20190130

REACTIONS (5)
  - Back pain [Unknown]
  - Multiple sclerosis [Unknown]
  - Fatigue [Unknown]
  - Neck pain [Unknown]
  - Dental caries [Unknown]

NARRATIVE: CASE EVENT DATE: 20170801
